FAERS Safety Report 22749629 (Version 8)
Quarter: 2025Q4

REPORT INFORMATION
  Report Type: Spontaneous
  Country: EU (occurrence: EU)
  Receive Date: 20230726
  Receipt Date: 20251025
  Transmission Date: 20260118
  Serious: Yes (Other)
  Sender: CELLTRION
  Company Number: EU-CELLTRION INC.-2023CZ012540

PATIENT

DRUGS (25)
  1. TRASTUZUMAB [Suspect]
     Active Substance: TRASTUZUMAB
     Indication: HER2 positive breast cancer
     Dosage: AS PACLITAXEL + TRASTUZUMAB
     Dates: start: 2016
  2. TRASTUZUMAB [Suspect]
     Active Substance: TRASTUZUMAB
     Indication: Breast cancer stage III
     Dosage: AS PERTUZUMAB + TRASTUZUMAB + DOCETAXEL (ADMINISTERED 5 SERIES) / UNK, CYCLIC (5 CYCLES)
     Route: 065
     Dates: start: 202106
  3. TRASTUZUMAB [Suspect]
     Active Substance: TRASTUZUMAB
     Indication: Breast cancer
     Dosage: AS TUCATINIB + CAPECITABIN + TRASTUZUMAB
     Dates: start: 202302
  4. TRASTUZUMAB [Suspect]
     Active Substance: TRASTUZUMAB
     Indication: Neoplasm
     Dosage: UNK, CYCLIC (5 CYCLES)
     Route: 065
     Dates: start: 202106
  5. TRASTUZUMAB [Suspect]
     Active Substance: TRASTUZUMAB
     Indication: Invasive ductal breast carcinoma
     Dosage: UNK, QCY ADMINISTERED 5 SERIES
     Dates: start: 202106
  6. TRASTUZUMAB [Suspect]
     Active Substance: TRASTUZUMAB
     Dosage: UNK
     Route: 065
  7. TRASTUZUMAB [Suspect]
     Active Substance: TRASTUZUMAB
     Dosage: UNK
     Dates: start: 202106
  8. DOCETAXEL [Suspect]
     Active Substance: DOCETAXEL
     Indication: HER2 positive breast cancer
     Dosage: AS PERTUZUMAB + TRASTUZUMAB + DOCETAXEL (ADMINISTERED 5 SERIES) / UNK UNK, CYCLIC (5 CYCLES) / UNK,
     Route: 065
     Dates: start: 202106
  9. DOCETAXEL [Suspect]
     Active Substance: DOCETAXEL
     Indication: Breast cancer stage III
     Dosage: UNK
     Route: 065
     Dates: start: 202106
  10. DOCETAXEL [Suspect]
     Active Substance: DOCETAXEL
     Indication: Breast cancer
     Dosage: UNK, QCY ADMINISTERED 5 SERIES
     Route: 065
     Dates: start: 202106
  11. DOCETAXEL [Suspect]
     Active Substance: DOCETAXEL
     Indication: Neoplasm
     Dosage: UNK
     Dates: start: 202106
  12. DOCETAXEL [Suspect]
     Active Substance: DOCETAXEL
     Indication: Invasive ductal breast carcinoma
     Dosage: 1 CYCLE, UNK, QCY ADMINISTERED 5 SERIES
     Dates: start: 202106
  13. DOXORUBICIN HYDROCHLORIDE [Suspect]
     Active Substance: DOXORUBICIN HYDROCHLORIDE
     Indication: Neoplasm
     Dosage: UNK
     Route: 065
  14. DOXORUBICIN HYDROCHLORIDE [Suspect]
     Active Substance: DOXORUBICIN HYDROCHLORIDE
     Dosage: UNK
  15. CYCLOPHOSPHAMIDE [Suspect]
     Active Substance: CYCLOPHOSPHAMIDE
     Indication: Neoplasm
     Dosage: UNK
     Route: 065
  16. CYCLOPHOSPHAMIDE [Suspect]
     Active Substance: CYCLOPHOSPHAMIDE
     Dosage: UNK
  17. PERTUZUMAB [Suspect]
     Active Substance: PERTUZUMAB
     Indication: HER2 positive breast cancer
     Dosage: AS PERTUZUMAB + TRASTUZUMAB + DOCETAXEL (ADMINISTERED 5 SERIES) / UNK UNK, CYCLIC (5 CYCLES) / UNK,
     Route: 065
     Dates: start: 202106
  18. PERTUZUMAB [Suspect]
     Active Substance: PERTUZUMAB
     Indication: Breast cancer stage III
     Dosage: UNK
     Route: 065
     Dates: start: 202106
  19. PERTUZUMAB [Suspect]
     Active Substance: PERTUZUMAB
     Indication: Breast cancer
     Dosage: UNK, QCY ADMINISTERED 5 SERIES
     Route: 065
     Dates: start: 202106
  20. PERTUZUMAB [Suspect]
     Active Substance: PERTUZUMAB
     Indication: Neoplasm
     Dosage: UNK
     Dates: start: 202106
  21. PERTUZUMAB [Suspect]
     Active Substance: PERTUZUMAB
     Indication: Invasive ductal breast carcinoma
     Dosage: 1 CYCLE, UNK, QCY ADMINISTERED 5 SERIES
     Dates: start: 202106
  22. PACLITAXEL [Concomitant]
     Active Substance: PACLITAXEL
     Indication: Breast cancer stage III
     Dosage: UNK
     Route: 065
  23. PACLITAXEL [Concomitant]
     Active Substance: PACLITAXEL
     Indication: Neoplasm
     Dosage: UNK
  24. CAPECITABINE [Concomitant]
     Active Substance: CAPECITABINE
     Indication: HER2 positive breast cancer
     Dosage: TUCATINIB + CAPECITABIN + TRASTUZUMAB
     Dates: start: 202302
  25. TUCATINIB [Concomitant]
     Active Substance: TUCATINIB
     Indication: HER2 positive breast cancer
     Dosage: TUCATINIB + CAPECITABIN + TRASTUZUMAB
     Dates: start: 202302

REACTIONS (8)
  - Disease recurrence [Unknown]
  - Drug intolerance [Unknown]
  - Paronychia [Unknown]
  - Stomatitis [Unknown]
  - Gait inability [Recovered/Resolved]
  - Asthenia [Recovered/Resolved]
  - Dizziness [Recovered/Resolved]
  - Product use issue [Unknown]

NARRATIVE: CASE EVENT DATE: 20230101
